FAERS Safety Report 6400032-8 (Version None)
Quarter: 2009Q4

REPORT INFORMATION
  Report Type: 
  Country: None (occurrence: None)
  Receive Date: 20091014
  Receipt Date: 20091006
  Transmission Date: 20100525
  Serious: Yes (Death, Hospitalization)
  Sender: FDA-Public Use
  Company Number: A0787451A

PATIENT
  Age: 73 Year
  Sex: Female
  Weight: 74.1 kg

DRUGS (1)
  1. ROSIGLITAZONE MALEATE [Suspect]
     Indication: DIABETES MELLITUS
     Route: 048
     Dates: start: 19991201, end: 20010101

REACTIONS (1)
  - CARDIAC FAILURE CONGESTIVE [None]
